FAERS Safety Report 6191649-7 (Version None)
Quarter: 2009Q2

REPORT INFORMATION
  Report Type: 
  Country: None (occurrence: None)
  Receive Date: 20090515
  Receipt Date: 20090513
  Transmission Date: 20091009
  Serious: Yes (Other)
  Sender: FDA-Public Use
  Company Number: ES-PFIZER INC-2008058666

PATIENT
  Age: 64 Year

DRUGS (6)
  1. ATORVASTATIN [Suspect]
     Indication: CEREBROVASCULAR ACCIDENT
     Dosage: 20 MG, 1X/DAY
     Route: 048
     Dates: start: 20071201, end: 20080208
  2. DIAMICRON [Concomitant]
     Dosage: UNK
     Dates: end: 20080908
  3. ENALAPRIL [Concomitant]
     Dosage: UNK
     Dates: end: 20080716
  4. METFORMIN HCL [Concomitant]
     Dosage: 850 MG, 3X/DAY
  5. OMEPRAZOLE [Concomitant]
     Dosage: 20 UNK, 1X/DAY
  6. SINTROM [Concomitant]

REACTIONS (3)
  - ASTHENIA [None]
  - HEPATITIS TOXIC [None]
  - WEIGHT DECREASED [None]
